FAERS Safety Report 14525008 (Version 1)
Quarter: 2018Q1

REPORT INFORMATION
  Report Type: Spontaneous
  Country: US (occurrence: US)
  Receive Date: 20180213
  Receipt Date: 20180213
  Transmission Date: 20180509
  Serious: No
  Sender: FDA-Public Use
  Company Number: US-SERB S.A.S.-2041857

PATIENT
  Age: 62 Year
  Sex: Male

DRUGS (5)
  1. ISOFLURANE. [Concomitant]
     Active Substance: ISOFLURANE
  2. VECURONIUM [Concomitant]
     Active Substance: VECURONIUM BROMIDE
  3. FENTANYL. [Concomitant]
     Active Substance: FENTANYL
  4. METHYLENE BLUE. [Concomitant]
     Active Substance: METHYLENE BLUE
  5. CYANOKIT [Suspect]
     Active Substance: HYDROXOCOBALAMIN
     Indication: VASOPLEGIA SYNDROME
     Route: 042

REACTIONS (1)
  - Product use in unapproved indication [Recovered/Resolved]
